FAERS Safety Report 16081796 (Version 3)
Quarter: 2019Q2

REPORT INFORMATION
  Report Type: Spontaneous
  Country: US (occurrence: US)
  Receive Date: 20190316
  Receipt Date: 20190503
  Transmission Date: 20190711
  Serious: Yes (Death, Hospitalization, Other)
  Sender: FDA-Public Use
  Company Number: US-UNITED THERAPEUTICS-UNT-2019-004657

PATIENT
  Sex: Male

DRUGS (1)
  1. REMODULIN [Suspect]
     Active Substance: TREPROSTINIL
     Indication: PULMONARY ARTERIAL HYPERTENSION
     Dosage: UNK
     Route: 041

REACTIONS (8)
  - Lung abscess [Fatal]
  - Pneumonia [Fatal]
  - Obliterative bronchiolitis [Fatal]
  - Respiratory disorder [Unknown]
  - Lung transplant rejection [Fatal]
  - Pulmonary hypertension [Fatal]
  - Pulmonary oedema [Unknown]
  - Right ventricular dysfunction [Unknown]
